FAERS Safety Report 24063666 (Version 1)
Quarter: 2024Q3

REPORT INFORMATION
  Report Type: Spontaneous
  Country: US (occurrence: US)
  Receive Date: 20240709
  Receipt Date: 20240709
  Transmission Date: 20241016
  Serious: No
  Sender: DR REDDYS
  Company Number: None

PATIENT
  Age: 41 Year
  Sex: Female

DRUGS (3)
  1. CLOZAPINE [Suspect]
     Active Substance: CLOZAPINE
     Indication: Mania
     Dosage: CLOZAPINE TITRATION RATE (AVERAGED): 18.2MG/DAY
  2. CLOZAPINE [Suspect]
     Active Substance: CLOZAPINE
     Dosage: BY DAY 11
  3. LEVOTHYROXINE [Concomitant]
     Active Substance: LEVOTHYROXINE\LEVOTHYROXINE SODIUM
     Indication: Hypothyroidism

REACTIONS (10)
  - Fatigue [Recovering/Resolving]
  - Sedation [Recovering/Resolving]
  - Toxicity to various agents [Recovering/Resolving]
  - Balance disorder [Recovering/Resolving]
  - Dizziness [Recovering/Resolving]
  - Somnolence [Recovering/Resolving]
  - Salivary hypersecretion [Recovering/Resolving]
  - C-reactive protein increased [Recovering/Resolving]
  - Constipation [Recovering/Resolving]
  - Cough [Recovering/Resolving]
